FAERS Safety Report 4558104-9 (Version None)
Quarter: 2005Q1

REPORT INFORMATION
  Report Type: 
  Country: None (occurrence: None)
  Receive Date: 20050121
  Receipt Date: 20041110
  Transmission Date: 20050727
  Serious: No
  Sender: FDA-Public Use
  Company Number: US-BRISTOL-MYERS SQUIBB COMPANY-12762142

PATIENT
  Age: 23 Year
  Sex: Female

DRUGS (5)
  1. ABILIFY [Suspect]
     Indication: DEPRESSION
     Dosage: INITATED AT 10 MG AND TITRATED UP.
     Route: 048
     Dates: start: 20040301, end: 20041102
  2. ABILIFY [Suspect]
     Indication: PSYCHOTIC DISORDER
     Dosage: INITATED AT 10 MG AND TITRATED UP.
     Route: 048
     Dates: start: 20040301, end: 20041102
  3. SERZONE [Suspect]
     Indication: DEPRESSION
     Route: 048
     Dates: start: 20030301, end: 20041102
  4. SERZONE [Suspect]
     Indication: PSYCHOTIC DISORDER
     Route: 048
     Dates: start: 20030301, end: 20041102
  5. KLONOPIN [Concomitant]

REACTIONS (1)
  - PREGNANCY [None]
